FAERS Safety Report 23559334 (Version 1)
Quarter: 2024Q1

REPORT INFORMATION
  Report Type: Spontaneous
  Country: DE (occurrence: DE)
  Receive Date: 20240223
  Receipt Date: 20240223
  Transmission Date: 20240410
  Serious: Yes (Hospitalization, Other)
  Sender: FDA-Public Use
  Company Number: DE-SAMSUNG BIOEPIS-SB-2024-05395

PATIENT
  Age: 59 Year
  Sex: Male

DRUGS (12)
  1. ONTRUZANT [Suspect]
     Active Substance: TRASTUZUMAB-DTTB
     Indication: Oesophageal adenocarcinoma
     Dosage: D1: 8 MG/KG 6 MG/KG IV D22/D43 PRE- AND POST OP AFTERWARDS 6 MG/KG IV D1?DOSE: 8 MG/KG
     Route: 042
     Dates: start: 20231011
  2. ONTRUZANT [Suspect]
     Active Substance: TRASTUZUMAB-DTTB
     Dosage: D1: 8 MG/KG 6 MG/KG IV D22/D43 PRE- AND POST OP AFTERWARDS 6 MG/KG IV D1?DOSE: 6 MG/KG
     Route: 042
     Dates: start: 20231206
  3. PEMBROLIZUMAB [Suspect]
     Active Substance: PEMBROLIZUMAB
     Indication: Oesophageal adenocarcinoma
     Dosage: 200MG FLAT DOSE, IV D1/D22/D43 PRE- AND POST OP, AFTERWARDS D1 Q3W
     Route: 042
     Dates: start: 20231011
  4. PEMBROLIZUMAB [Suspect]
     Active Substance: PEMBROLIZUMAB
     Dosage: 200MG FLAT DOSE, IV D1/D22/D43 PRE- AND POST OP, AFTERWARDS D1 Q3W
     Route: 042
     Dates: start: 20231206
  5. OXALIPLATIN [Suspect]
     Active Substance: OXALIPLATIN
     Indication: Oesophageal adenocarcinoma
     Dosage: D1/D15/D29 AND D43 PRE- AND POST OP?DOSE: 85 MG/M2
     Route: 042
     Dates: start: 20231025
  6. OXALIPLATIN [Suspect]
     Active Substance: OXALIPLATIN
     Dosage: D1/D15/D29 AND D43 PRE- AND POST OP?DOSE: 85 MG/M2
     Route: 042
     Dates: start: 20231115
  7. LEUCOVORIN [Suspect]
     Active Substance: LEUCOVORIN\LEUCOVORIN CALCIUM
     Indication: Oesophageal adenocarcinoma
     Dosage: D1/D15/D29 AND D43 PRE- AND POST OP
     Route: 042
     Dates: start: 20231115
  8. LEUCOVORIN [Suspect]
     Active Substance: LEUCOVORIN\LEUCOVORIN CALCIUM
     Dosage: D1/D15/D29 AND D43 PRE- AND POST OP
     Route: 042
     Dates: start: 20231025
  9. FLUOROURACIL [Suspect]
     Active Substance: FLUOROURACIL
     Indication: Oesophageal adenocarcinoma
     Dosage: D1/D15/D29 AND D43 PRE- AND POST OP
     Route: 042
     Dates: start: 20231025
  10. FLUOROURACIL [Suspect]
     Active Substance: FLUOROURACIL
     Dosage: D1/D15/D29 AND D43 PRE- AND POST OP
     Route: 042
     Dates: start: 20231115
  11. DOCETAXEL [Suspect]
     Active Substance: DOCETAXEL\DOCETAXEL ANHYDROUS
     Indication: Oesophageal adenocarcinoma
     Dosage: D1/D15/D29 AND D43 PRE- AND POST OP
     Route: 042
     Dates: start: 20231025
  12. DOCETAXEL [Suspect]
     Active Substance: DOCETAXEL\DOCETAXEL ANHYDROUS
     Dosage: D1/D15/D29 AND D43 PRE- AND POST OP
     Route: 042
     Dates: start: 20231115

REACTIONS (3)
  - Gastrointestinal anastomotic leak [Not Recovered/Not Resolved]
  - Procedural pain [Not Recovered/Not Resolved]
  - Surgery [Not Recovered/Not Resolved]

NARRATIVE: CASE EVENT DATE: 20240111
